FAERS Safety Report 16881273 (Version 5)
Quarter: 2019Q4

REPORT INFORMATION
  Report Type: Report from Study
  Country: JP (occurrence: JP)
  Receive Date: 20191003
  Receipt Date: 20191226
  Transmission Date: 20200122
  Serious: Yes (Death, Life-Threatening, Other)
  Sender: FDA-Public Use
  Company Number: JP-ASTELLAS-2019JP021427

PATIENT
  Age: 6 Decade
  Sex: Male

DRUGS (36)
  1. CYTARABINE. [Concomitant]
     Active Substance: CYTARABINE
     Indication: ACUTE MYELOID LEUKAEMIA
     Dosage: 200 MG/DAY, UNKNOWN FREQ.
     Route: 042
     Dates: start: 20190816, end: 20190831
  2. AMBISOME [Concomitant]
     Active Substance: AMPHOTERICIN B
     Indication: PNEUMONIA
     Dosage: 350 MG/DAY, UNKNOWN FREQ.
     Route: 042
     Dates: start: 20190820, end: 20190823
  3. FLUDARABINE [Concomitant]
     Active Substance: FLUDARABINE PHOSPHATE
     Indication: ACUTE MYELOID LEUKAEMIA
     Dosage: 55 MG/DAY, UNKNOWN FREQ.
     Route: 042
     Dates: start: 20190831, end: 20190905
  4. CANCIDAS [Concomitant]
     Active Substance: CASPOFUNGIN ACETATE
     Indication: PRODUCT USED FOR UNKNOWN INDICATION
  5. HICALIQ [Concomitant]
     Active Substance: CALCIUM GLUCONATE\DEXTROSE\MAGNESIUM SULFATE\POTASSIUM ACETATE\POTASSIUM PHOSPHATE, DIBASIC\ZINC SULFATE
     Indication: PROPHYLAXIS
     Dosage: 500 ML/DAY, UNKNOWN FREQ.
     Route: 042
     Dates: start: 20190910, end: 20190920
  6. NEUTROGIN [Concomitant]
     Active Substance: LENOGRASTIM
     Indication: PRODUCT USED FOR UNKNOWN INDICATION
     Dosage: 250 ?G/DAY, UNKNOWN FREQ.
     Route: 042
     Dates: start: 20190912, end: 20190920
  7. CYTARABINE. [Concomitant]
     Active Substance: CYTARABINE
     Dosage: 3.6 G/DAY, UNKNOWN FREQ.
     Route: 042
     Dates: start: 20190831, end: 20190903
  8. VENILON [Concomitant]
     Active Substance: HUMAN IMMUNOGLOBULIN G
     Indication: PROPHYLAXIS
     Route: 042
     Dates: start: 20190819, end: 20190917
  9. ORGARAN [Concomitant]
     Active Substance: DANAPAROID SODIUM
     Indication: PROPHYLAXIS
     Dosage: 2500/DAY, UNKNOWN FREQ.
     Route: 042
     Dates: start: 20190902, end: 20190913
  10. GLYCEOL [Concomitant]
     Active Substance: GLYCERIN
     Indication: PROPHYLAXIS
     Dosage: 200 ML/DAY, UNKNOWN FREQ.
     Route: 042
     Dates: start: 20190909, end: 20190909
  11. ASP2215 [Suspect]
     Active Substance: GILTERITINIB
     Indication: ACUTE MYELOID LEUKAEMIA RECURRENT
     Route: 048
     Dates: start: 20190815, end: 20190907
  12. FULCALIQ [Concomitant]
     Active Substance: AMINO ACIDS\CARBOHYDRATES\ELECTROLYTES NOS\VITAMINS
     Indication: PROPHYLAXIS
     Dosage: 903 ML/DAY, UNKNOWN FREQ.
     Route: 042
     Dates: start: 20190816, end: 20190902
  13. CEFTAZIDIME. [Concomitant]
     Active Substance: CEFTAZIDIME
     Indication: PNEUMONIA
     Dosage: 3 G/DAY, UNKNOWN FREQ.
     Route: 042
     Dates: start: 20190828, end: 20190902
  14. THYMOGLOBULINE [Concomitant]
     Active Substance: LAPINE T-LYMPHOCYTE IMMUNE GLOBULIN
     Indication: PROPHYLAXIS
     Dosage: 80 MG/DAY, UNKNOWN FREQ.
     Route: 042
     Dates: start: 20190907, end: 20190908
  15. MEROPENEM. [Concomitant]
     Active Substance: MEROPENEM
     Indication: PNEUMONIA
     Dosage: 3 G/DAY, UNKNOWN FREQ.
     Route: 042
     Dates: start: 20190820, end: 20190827
  16. MEROPENEM. [Concomitant]
     Active Substance: MEROPENEM
     Indication: PROPHYLAXIS
     Dosage: 3 G/DAY, UNKNOWN FREQ.
     Route: 042
     Dates: start: 20190910, end: 20190920
  17. SULPYRINE [METAMIZOLE SODIUM] [Concomitant]
     Indication: PROPHYLAXIS
     Dosage: 500 MG/DAY, UNKNOWN FREQ.
     Route: 042
     Dates: start: 20190907, end: 20190908
  18. KIDMIN [Concomitant]
     Active Substance: AMINO ACIDS\ELECTROLYTES NOS
     Indication: PROPHYLAXIS
     Dosage: 400 ML/DAY, UNKNOWN FREQ.
     Route: 042
     Dates: start: 20190910, end: 20190920
  19. GRANISETRON [Concomitant]
     Active Substance: GRANISETRON
     Indication: PROPHYLAXIS
     Dosage: 6 MG/DAY, UNKNOWN FREQ.
     Route: 042
     Dates: start: 20190816, end: 20190909
  20. HANP [Concomitant]
     Active Substance: CARPERITIDE
     Indication: PROPHYLAXIS
     Dosage: UNK UNK, UNKNOWN FREQ.
     Route: 042
     Dates: start: 20190913, end: 20190918
  21. TAZOPIP [Concomitant]
     Active Substance: PIPERACETAZINE\TAZOBACTAM
     Dosage: 13.5 G/DAY, UNKNOWN FREQ.
     Route: 042
     Dates: start: 20190903, end: 20190909
  22. PREDONINE [Concomitant]
     Active Substance: PREDNISOLONE
     Indication: PROPHYLAXIS
     Dosage: 20 MG/DAY, UNKNOWN FREQ.
     Route: 042
     Dates: start: 20190816, end: 20190819
  23. LASIX [Concomitant]
     Active Substance: FUROSEMIDE
     Indication: PROPHYLAXIS
     Dosage: 40 MG/DAY, UNKNOWN FREQ.
     Route: 042
     Dates: start: 20190820, end: 20190912
  24. FULCALIQ [Concomitant]
     Active Substance: AMINO ACIDS\CARBOHYDRATES\ELECTROLYTES NOS\VITAMINS
     Indication: PROPHYLAXIS
     Dosage: 1003 ML/DAY, UNKNOWN FREQ.
     Route: 042
     Dates: start: 20190903, end: 20190909
  25. VOLVIX [Concomitant]
     Indication: PROPHYLAXIS
     Dosage: 2 ML/DAY, UNKNOWN FREQ.
     Route: 042
     Dates: start: 20190910, end: 20190920
  26. ADONA [CARBAZOCHROME SODIUM SULFONATE] [Concomitant]
     Active Substance: CARBAZOCHROME SODIUM SULFONATE
     Indication: MELAENA
     Dosage: 100 MG/DAY, UNKNOWN FREQ.
     Route: 042
     Dates: start: 20190913, end: 20190920
  27. VORICONAZOLE. [Suspect]
     Active Substance: VORICONAZOLE
     Indication: ACUTE MYELOID LEUKAEMIA
     Dosage: 400 MG/DAY, UNKNOWN FREQ.
     Route: 048
     Dates: start: 20190819, end: 20190913
  28. METHYLPREDNISOLONE SODIUM SUCCINATE. [Concomitant]
     Active Substance: METHYLPREDNISOLONE SODIUM SUCCINATE
     Indication: PROPHYLAXIS
     Dosage: 40 MG/DAY, UNKNOWN FREQ.
     Route: 042
     Dates: start: 20190819, end: 20190920
  29. VITAJECT [Concomitant]
     Active Substance: CYANOCOBALAMIN\PYRIDOXAMINE HYDROCHLORIDE\THIAMINE HYDROCHLORIDE
     Indication: PROPHYLAXIS
     Dosage: 5 ML/DAY, UNKNOWN FREQ.
     Route: 042
     Dates: start: 20190910, end: 20190920
  30. TRANSAMIN [Concomitant]
     Active Substance: TRANEXAMIC ACID
     Indication: MELAENA
     Dosage: 1 G/DAY, UNKNOWN FREQ.
     Route: 042
     Dates: start: 20190913, end: 20190920
  31. CALCICOL [Concomitant]
     Active Substance: CALCIUM GLUCONATE
     Indication: PROPHYLAXIS
     Dosage: 10 ML/DAY, UNKNOWN FREQ.
     Route: 042
     Dates: start: 20190914, end: 20190920
  32. PROGRAF [Suspect]
     Active Substance: TACROLIMUS
     Indication: PROPHYLAXIS
     Dosage: UNK UNK, UNKNOWN FREQ.
     Route: 042
     Dates: start: 20190906
  33. TAZOPIP [Concomitant]
     Active Substance: PIPERACETAZINE\TAZOBACTAM
     Indication: PNEUMONIA
     Dosage: 13.5 G/DAY, UNKNOWN FREQ.
     Route: 042
     Dates: start: 20190816, end: 20190819
  34. CANCIDAS [Concomitant]
     Active Substance: CASPOFUNGIN ACETATE
     Indication: PNEUMONIA
     Dosage: 50 MG/DAY, UNKNOWN FREQ.
     Route: 042
     Dates: start: 20190904, end: 20190909
  35. MELPHALAN. [Concomitant]
     Active Substance: MELPHALAN
     Indication: ACUTE MYELOID LEUKAEMIA
     Dosage: 120 MG/DAY, UNKNOWN FREQ.
     Route: 042
     Dates: start: 20190906, end: 20190907
  36. POLARAMINE [Concomitant]
     Active Substance: DEXCHLORPHENIRAMINE MALEATE
     Indication: PROPHYLAXIS
     Dosage: 10 MG/DAY, UNKNOWN FREQ.
     Route: 042
     Dates: start: 20190907, end: 20190908

REACTIONS (5)
  - Hepatic function abnormal [Not Recovered/Not Resolved]
  - Melaena [Recovered/Resolved]
  - Candida sepsis [Fatal]
  - Bone marrow failure [Not Recovered/Not Resolved]
  - Renal impairment [Not Recovered/Not Resolved]

NARRATIVE: CASE EVENT DATE: 20190902
